FAERS Safety Report 17893789 (Version 1)
Quarter: 2020Q2

REPORT INFORMATION
  Report Type: Spontaneous
  Country: US (occurrence: US)
  Receive Date: 20200615
  Receipt Date: 20200615
  Transmission Date: 20200714
  Serious: No
  Sender: FDA-Public Use
  Company Number: US-009507513-2006USA004123

PATIENT
  Sex: Female
  Weight: 70.31 kg

DRUGS (2)
  1. NALBUPHINE HYDROCHLORIDE. [Concomitant]
     Active Substance: NALBUPHINE HYDROCHLORIDE
     Indication: MIGRAINE
     Dosage: 10 MG/ML 4 TIMES DAILY AS NEEDED
     Dates: start: 2005
  2. MAXALT [Suspect]
     Active Substance: RIZATRIPTAN BENZOATE
     Indication: MIGRAINE
     Dosage: 10 MILLIGRAM, AS NEEDED UPTO TWICE DAILY
     Route: 048
     Dates: start: 202004

REACTIONS (2)
  - Drug ineffective [Unknown]
  - Product label issue [Unknown]
